FAERS Safety Report 14243900 (Version 1)
Quarter: 2017Q4

REPORT INFORMATION
  Report Type: Spontaneous
  Country: NL (occurrence: NL)
  Receive Date: 20171201
  Receipt Date: 20171201
  Transmission Date: 20180321
  Serious: Yes (Hospitalization)
  Sender: FDA-Public Use
  Company Number: NL-PFIZER INC-2017513408

PATIENT
  Age: 28 Year
  Sex: Female

DRUGS (4)
  1. HYDROXOCOBALAMIN [Concomitant]
     Active Substance: HYDROXOCOBALAMIN
     Dosage: UNK
     Route: 050
  2. SULFASALAZINE. [Suspect]
     Active Substance: SULFASALAZINE
     Indication: TENDONITIS
     Dosage: 1000 MG, 2X/DAY
     Route: 050
     Dates: start: 20171019, end: 20171103
  3. PREDNISOLON /00016201/ [Concomitant]
     Active Substance: PREDNISOLONE
     Dosage: 5 MG, UNK
  4. MICROGYNON /00022701/ [Concomitant]
     Active Substance: ETHINYL ESTRADIOL\LEVONORGESTREL ACETATE
     Dosage: UNK

REACTIONS (4)
  - Chest discomfort [Recovered/Resolved]
  - Pyrexia [Recovered/Resolved]
  - Palpitations [Recovered/Resolved]
  - Product use in unapproved indication [Unknown]

NARRATIVE: CASE EVENT DATE: 20171103
